FAERS Safety Report 20858931 (Version 3)
Quarter: 2023Q4

REPORT INFORMATION
  Report Type: Spontaneous
  Country: US (occurrence: US)
  Receive Date: 20220522
  Receipt Date: 20231120
  Transmission Date: 20240110
  Serious: Yes (Other)
  Sender: FDA-Public Use
  Company Number: US-GILEAD-2022-0582413

PATIENT
  Age: 45 Year
  Sex: Male
  Weight: 79.365 kg

DRUGS (27)
  1. ATRIPLA [Suspect]
     Active Substance: EFAVIRENZ\EMTRICITABINE\TENOFOVIR DISOPROXIL FUMARATE
     Indication: HIV infection
     Dosage: UNK
     Route: 048
     Dates: start: 2009
  2. TRUVADA [Suspect]
     Active Substance: EMTRICITABINE\TENOFOVIR DISOPROXIL FUMARATE
     Indication: HIV infection
     Dosage: UNK
     Route: 048
     Dates: start: 2009, end: 201308
  3. COMPLERA [Suspect]
     Active Substance: EMTRICITABINE\RILPIVIRINE HYDROCHLORIDE\TENOFOVIR DISOPROXIL FUMARATE
     Indication: HIV infection
     Dosage: UNK
     Route: 065
     Dates: start: 201311, end: 201503
  4. COMBIVIR [Concomitant]
     Active Substance: LAMIVUDINE\ZIDOVUDINE
  5. EDURANT [Concomitant]
     Active Substance: RILPIVIRINE HYDROCHLORIDE
  6. JULUCA [Concomitant]
     Active Substance: DOLUTEGRAVIR SODIUM\RILPIVIRINE HYDROCHLORIDE
  7. NORVIR [Concomitant]
     Active Substance: RITONAVIR
  8. PREZCOBIX [Concomitant]
     Active Substance: COBICISTAT\DARUNAVIR ETHANOLATE
  9. PREZISTA [Concomitant]
     Active Substance: DARUNAVIR ETHANOLATE
  10. TIVICAY [Concomitant]
     Active Substance: DOLUTEGRAVIR SODIUM
  11. ESCITALOPRAM [Concomitant]
     Active Substance: ESCITALOPRAM OXALATE
  12. LEVOTHYROXINE [Concomitant]
     Active Substance: LEVOTHYROXINE
  13. LISINOPRIL [Concomitant]
     Active Substance: LISINOPRIL
  14. METFORMIN [Concomitant]
     Active Substance: METFORMIN HYDROCHLORIDE
  15. ROSUVASTATIN [Concomitant]
     Active Substance: ROSUVASTATIN
  16. VASCEPA [Concomitant]
     Active Substance: ICOSAPENT ETHYL
  17. ANDROGEL [Concomitant]
     Active Substance: TESTOSTERONE
  18. ATORVASTATIN [Concomitant]
     Active Substance: ATORVASTATIN
  19. BACLOFEN [Concomitant]
     Active Substance: BACLOFEN
  20. CIMETIDINE [Concomitant]
     Active Substance: CIMETIDINE
  21. CLOTRIMAZOLE [Concomitant]
     Active Substance: CLOTRIMAZOLE
  22. HYDROCODONE [Concomitant]
     Active Substance: HYDROCODONE
  23. IMIQUIMODE [Concomitant]
  24. KETOCONAZOLE [Concomitant]
     Active Substance: KETOCONAZOLE
  25. LORAZEPAM [Concomitant]
     Active Substance: LORAZEPAM
  26. TERBINAFINE [Concomitant]
     Active Substance: TERBINAFINE
  27. ZOLPIDEM [Concomitant]
     Active Substance: ZOLPIDEM TARTRATE

REACTIONS (9)
  - Osteoporosis [Unknown]
  - Osteonecrosis [Not Recovered/Not Resolved]
  - Bone demineralisation [Unknown]
  - Pain [Not Recovered/Not Resolved]
  - Emotional distress [Not Recovered/Not Resolved]
  - Anxiety [Not Recovered/Not Resolved]
  - Anhedonia [Not Recovered/Not Resolved]
  - Osteopenia [Not Recovered/Not Resolved]
  - Blood triglycerides increased [Not Recovered/Not Resolved]

NARRATIVE: CASE EVENT DATE: 20121001
